FAERS Safety Report 21735122 (Version 1)
Quarter: 2022Q4

REPORT INFORMATION
  Report Type: Spontaneous
  Country: US (occurrence: None)
  Receive Date: 20221212
  Receipt Date: 20221212
  Transmission Date: 20230113
  Serious: Yes (Disabling)
  Sender: FDA-Public Use
  Company Number: None

PATIENT
  Age: 77 Year
  Sex: Female
  Weight: 85.05 kg

DRUGS (9)
  1. TESTOSTERONE [Suspect]
     Active Substance: TESTOSTERONE
     Indication: Hormone replacement therapy
     Dosage: OTHER STRENGTH : UNKNOWN;?OTHER QUANTITY : 1 PELLET;?OTHER FREQUENCY : 3 TO 4 MONTHS;?
     Route: 058
  2. FUROSEMIDE [Concomitant]
     Active Substance: FUROSEMIDE
  3. DOXYCYCLINE [Concomitant]
     Active Substance: DOXYCYCLINE
  4. LEVOTHYROXINE [Concomitant]
     Active Substance: LEVOTHYROXINE
  5. TESTOSTERONE [Concomitant]
     Active Substance: TESTOSTERONE
  6. VIT D [Concomitant]
  7. ASPIRIN [Concomitant]
     Active Substance: ASPIRIN
  8. ADVIL [Concomitant]
     Active Substance: IBUPROFEN
  9. VOLTAREN [Concomitant]
     Active Substance: DICLOFENAC SODIUM

REACTIONS (4)
  - Vertigo positional [None]
  - Rosacea [None]
  - Pustule [None]
  - Rash [None]

NARRATIVE: CASE EVENT DATE: 20210518
